FAERS Safety Report 9026538 (Version 1)
Quarter: 2013Q1

REPORT INFORMATION
  Report Type: Spontaneous
  Country: DK (occurrence: None)
  Receive Date: 20130109
  Receipt Date: 20130109
  Transmission Date: 20140127
  Serious: Yes (Life-Threatening, Hospitalization)
  Sender: FDA-Public Use
  Company Number: 2013MA000127

PATIENT
  Age: 6 Year
  Sex: Female

DRUGS (4)
  1. RANITIDINE SYRUP (RANITIDINE ORAL SOLUTION USP), 15 MG/ML (MALLC) (RANITIDINE) [Suspect]
     Route: 048
     Dates: start: 20121123
  2. SYNACTHEN DEPOT [Concomitant]
  3. VIGABATRIN [Concomitant]
  4. LACTULOSE [Concomitant]

REACTIONS (3)
  - Irritability [None]
  - Pallor [None]
  - Bradycardia [None]
